FAERS Safety Report 9332658 (Version 1)
Quarter: 2013Q2

REPORT INFORMATION
  Report Type: Report from Study
  Country: CA (occurrence: CA)
  Receive Date: 20130606
  Receipt Date: 20130606
  Transmission Date: 20140414
  Serious: Yes (Hospitalization)
  Sender: FDA-Public Use
  Company Number: CA-JNJFOC-20130522946

PATIENT
  Age: 37 Year
  Sex: Female
  Weight: 65 kg

DRUGS (3)
  1. REMICADE [Suspect]
     Indication: COLITIS ULCERATIVE
     Route: 042
     Dates: start: 20130517
  2. ANTIBIOTIC [Concomitant]
     Dosage: SINCE HOSPITALIZATION 3 WEEKS AGO (APPROX 10-MAY-2013)
     Route: 042
  3. SOLU MEDROL [Concomitant]
     Dosage: SINCE HOSPITALIZATION 3 WEEKS AGO (APPROX 10-MAY-2013)
     Route: 042

REACTIONS (1)
  - Surgery [Unknown]
